FAERS Safety Report 9371131 (Version 1)
Quarter: 2013Q2

REPORT INFORMATION
  Report Type: Spontaneous
  Country: QA (occurrence: QA)
  Receive Date: 20130627
  Receipt Date: 20130627
  Transmission Date: 20140414
  Serious: Yes (Hospitalization, Other)
  Sender: FDA-Public Use
  Company Number: QA-ACCORD-018210

PATIENT
  Age: 51 Year
  Sex: Female
  Weight: 55 kg

DRUGS (11)
  1. ALOPURINOL [Concomitant]
  2. ENTECAVIR [Concomitant]
  3. SPIRONOLACTONE [Concomitant]
  4. PROPRANOLOL [Concomitant]
  5. CYTARABINE [Suspect]
     Indication: HODGKIN^S DISEASE
     Dosage: ESHAP PROTOCOL, CYTARABINE 2000 MG/M2 ON DAY 5
     Route: 042
     Dates: start: 20120427
  6. FILGRASTIM [Suspect]
     Indication: PRODUCT USED FOR UNKNOWN INDICATION
     Route: 058
  7. CISPLATIN [Suspect]
     Indication: HODGKIN^S DISEASE
     Dosage: ON APRIL 23, 2012,ESHAP PROTOCOL STARTED, CISPLATIN 25 MG/M2/DAY AS A CONTINUOUS INFUSION ON DAY 1-4
     Route: 042
     Dates: start: 20120423
  8. ETOPOSIDE [Suspect]
     Indication: HODGKIN^S DISEASE
     Dosage: ON APRIL 23, 2012,ESHAP PROTOCOL STARTED, ETOPOSIDE 40 MG/M2/DAY ON DAYS 1-4
     Route: 042
     Dates: start: 20120423
  9. FUROSEMIDE [Concomitant]
  10. METHYLPREDNISOLONE [Suspect]
     Indication: HODGKIN^S DISEASE
     Dosage: ON APRIL 23, 2012,ESHAP PROTOCOL STARTED, METHYLPREDNISOLONE 500 MG/DAY ON DAYS 1-4
     Route: 042
     Dates: start: 20120423
  11. LACTULOSE [Concomitant]

REACTIONS (5)
  - Hyperthermia [Unknown]
  - Leukopenia [Recovering/Resolving]
  - Neutropenia [Unknown]
  - Hypophosphataemia [Recovered/Resolved]
  - Hypokalaemia [Unknown]
